FAERS Safety Report 24113805 (Version 2)
Quarter: 2024Q3

REPORT INFORMATION
  Report Type: Report from Study
  Country: CA (occurrence: CA)
  Receive Date: 20240720
  Receipt Date: 20240812
  Transmission Date: 20241017
  Serious: No
  Sender: REGENERON
  Company Number: CA-BAYER-2024A104242

PATIENT
  Sex: Female

DRUGS (1)
  1. EYLEA [Suspect]
     Active Substance: AFLIBERCEPT
     Indication: Diabetic retinal oedema
     Dosage: UNK; SOLUTION FOR INJECTION IN PRE-FILLED SYRINGE; 40 MG/ML
     Dates: start: 20240430

REACTIONS (2)
  - Dry eye [Recovered/Resolved]
  - Eye irritation [Recovered/Resolved]

NARRATIVE: CASE EVENT DATE: 20240523
